FAERS Safety Report 16793268 (Version 6)
Quarter: 2020Q4

REPORT INFORMATION
  Report Type: Other
  Country: US (occurrence: US)
  Receive Date: 20190911
  Receipt Date: 20201123
  Transmission Date: 20210113
  Serious: Yes (Other)
  Sender: FDA-Public Use
  Company Number: US-ROCHE-2355291

PATIENT
  Sex: Female
  Weight: 70.37 kg

DRUGS (3)
  1. OCREVUS [Suspect]
     Active Substance: OCRELIZUMAB
     Indication: RELAPSING-REMITTING MULTIPLE SCLEROSIS
     Dosage: ONGOING:UNKNOWN
     Route: 042
     Dates: start: 20180226, end: 201903
  2. OCREVUS [Suspect]
     Active Substance: OCRELIZUMAB
     Dosage: ONGOING: YES
     Route: 042
     Dates: start: 202007
  3. OCREVUS [Suspect]
     Active Substance: OCRELIZUMAB
     Route: 042
     Dates: start: 20180219

REACTIONS (5)
  - B-lymphocyte count decreased [Not Recovered/Not Resolved]
  - Pregnancy [Unknown]
  - Ligament sprain [Not Recovered/Not Resolved]
  - Multiple sclerosis [Unknown]
  - Illness [Unknown]
